FAERS Safety Report 16241860 (Version 3)
Quarter: 2019Q2

REPORT INFORMATION
  Report Type: Report from Study
  Country: US (occurrence: US)
  Receive Date: 20190426
  Receipt Date: 20190514
  Transmission Date: 20190711
  Serious: Yes (Hospitalization)
  Sender: FDA-Public Use
  Company Number: US-ROCHE-2304731

PATIENT
  Age: 60 Year
  Sex: Male
  Weight: 86.1 kg

DRUGS (25)
  1. GABAPENTIN. [Concomitant]
     Active Substance: GABAPENTIN
     Route: 048
     Dates: start: 20180301
  2. LIDOCAINE. [Concomitant]
     Active Substance: LIDOCAINE
     Route: 061
     Dates: start: 20190114
  3. NADOLOL. [Concomitant]
     Active Substance: NADOLOL
     Indication: HYPERTENSION
     Route: 048
     Dates: start: 201407
  4. OMEPRAZOLE. [Concomitant]
     Active Substance: OMEPRAZOLE
     Indication: DYSPHAGIA
     Route: 048
     Dates: start: 20190213
  5. ATEZOLIZUMAB. [Suspect]
     Active Substance: ATEZOLIZUMAB
     Indication: NON-SMALL CELL LUNG CANCER
     Dosage: DATE OF MOST RECENT DOSE OF ATEZOLIZUMAB PRIOR TO AE/SAE ONSET 18/MAR/2019 AT 11:42
     Route: 042
     Dates: start: 20181002
  6. PROAIR HFA [Concomitant]
     Active Substance: ALBUTEROL SULFATE
     Indication: CHRONIC OBSTRUCTIVE PULMONARY DISEASE
     Dosage: 2 PUFF
     Route: 050
     Dates: start: 20180821
  7. ANTURANE [Concomitant]
     Active Substance: SULFINPYRAZONE
     Indication: OSTEOPOROSIS
     Route: 042
     Dates: start: 20171031
  8. OXYCODONE [Concomitant]
     Active Substance: OXYCODONE
     Dosage: 15-30 MG
     Route: 048
     Dates: start: 201808
  9. MTIG7192A (ANTI-TIGIT MAB) [Suspect]
     Active Substance: TIRAGOLUMAB
     Indication: NON-SMALL CELL LUNG CANCER
     Dosage: DATE OF MOST RECENT DOSE OF MTIG7192A OR PLACEBO PRIOR TO AE/SAE ONSET 18/MAR/2019 AT 12 42
     Route: 042
     Dates: start: 20181002
  10. FOLIC ACID. [Concomitant]
     Active Substance: FOLIC ACID
     Indication: NUTRITIONAL SUPPLEMENTATION
     Route: 048
     Dates: start: 201301
  11. GABAPENTIN. [Concomitant]
     Active Substance: GABAPENTIN
     Route: 048
     Dates: start: 20181112
  12. ATEZOLIZUMAB. [Suspect]
     Active Substance: ATEZOLIZUMAB
     Route: 042
     Dates: start: 20190506
  13. MEGACE [Concomitant]
     Active Substance: MEGESTROL ACETATE
     Route: 048
     Dates: start: 20130808
  14. OXYCODONE [Concomitant]
     Active Substance: OXYCODONE
     Indication: PAIN
     Route: 048
     Dates: start: 20181224
  15. HYDROCORTISONE. [Concomitant]
     Active Substance: HYDROCORTISONE
     Dosage: REPLACEMENT THERAPY
     Route: 065
     Dates: start: 20190227
  16. VITAMIN B1 [Concomitant]
     Active Substance: THIAMINE HYDROCHLORIDE
     Indication: NUTRITIONAL SUPPLEMENTATION
     Route: 048
     Dates: start: 201301
  17. DOXEPIN [Concomitant]
     Active Substance: DOXEPIN
     Indication: INSOMNIA
     Route: 048
     Dates: start: 201701
  18. MIRALAX [Concomitant]
     Active Substance: POLYETHYLENE GLYCOL 3350
     Route: 048
     Dates: start: 201808
  19. MUCINEX [Concomitant]
     Active Substance: GUAIFENESIN
     Route: 065
     Dates: start: 201805
  20. VITAMIN B COMPLEX [Concomitant]
     Active Substance: CYANOCOBALAMIN\DEXPANTHENOL\NIACINAMIDE\PYRIDOXINE HYDROCHLORIDE\RIBOFLAVIN 5^-PHOSPHATE SODIUM\THIAMINE HYDROCHLORIDE\VITAMIN B COMPLEX
     Route: 065
     Dates: start: 201301
  21. MEGACE [Concomitant]
     Active Substance: MEGESTROL ACETATE
     Indication: DECREASED APPETITE
     Route: 048
     Dates: start: 20130813
  22. PROAIR HFA [Concomitant]
     Active Substance: ALBUTEROL SULFATE
     Indication: DYSPNOEA
  23. MORPHINE SULFATE. [Concomitant]
     Active Substance: MORPHINE SULFATE
     Indication: CANCER PAIN
     Route: 048
     Dates: start: 20181119
  24. MORPHINE SULFATE. [Concomitant]
     Active Substance: MORPHINE SULFATE
     Route: 048
     Dates: start: 201810
  25. OMEPRAZOLE. [Concomitant]
     Active Substance: OMEPRAZOLE
     Indication: GASTROOESOPHAGEAL REFLUX DISEASE

REACTIONS (1)
  - Encephalopathy [Recovered/Resolved]

NARRATIVE: CASE EVENT DATE: 20190406
